FAERS Safety Report 6993616-X (Version None)
Quarter: 2010Q3

REPORT INFORMATION
  Report Type: 
  Country: None (occurrence: None)
  Receive Date: 20100917
  Receipt Date: 20100916
  Transmission Date: 20110219
  Serious: Yes (Hospitalization)
  Sender: FDA-Public Use
  Company Number: PHHO2010KR13095

PATIENT
  Sex: Female
  Weight: 58.8 kg

DRUGS (1)
  1. AFINITOR [Suspect]
     Indication: SARCOMA METASTATIC
     Dosage: 10MG/DAY
     Route: 048
     Dates: start: 20100809, end: 20100821

REACTIONS (3)
  - ASTHENIA [None]
  - BACK PAIN [None]
  - THROMBOCYTOPENIA [None]
